FAERS Safety Report 5167512-7 (Version None)
Quarter: 2006Q4

REPORT INFORMATION
  Report Type: 
  Country: None (occurrence: None)
  Receive Date: 20060830
  Receipt Date: 20060603
  Transmission Date: 20070319
  Serious: No
  Sender: FDA-Public Use
  Company Number: 223537

PATIENT
  Age: 32 Year
  Sex: Female

DRUGS (1)
  1. XOLAIR [Suspect]
     Indication: ASTHMA
     Dates: start: 20050101

REACTIONS (1)
  - DRUG EXPOSURE DURING PREGNANCY [None]
